FAERS Safety Report 4406512-9 (Version None)
Quarter: 2004Q3

REPORT INFORMATION
  Report Type: 
  Country: None (occurrence: None)
  Receive Date: 20040716
  Receipt Date: 20040708
  Transmission Date: 20050211
  Serious: Yes (Hospitalization)
  Sender: FDA-Public Use
  Company Number: K200400996

PATIENT
  Age: 83 Year
  Sex: Male

DRUGS (7)
  1. ALTACE [Suspect]
     Indication: ESSENTIAL HYPERTENSION
     Dosage: SEE IMAGE
     Route: 048
     Dates: end: 20040201
  2. ALTACE [Suspect]
     Indication: ESSENTIAL HYPERTENSION
     Dosage: SEE IMAGE
     Route: 048
     Dates: start: 20040201
  3. ALDACTONE [Concomitant]
  4. CORDARONE [Concomitant]
  5. HUMALOG [Concomitant]
  6. PLAVIX [Concomitant]
  7. FUROSEMIDE [Concomitant]

REACTIONS (4)
  - HYPOGLYCAEMIA [None]
  - MALAISE [None]
  - ORTHOSTATIC HYPOTENSION [None]
  - VERTIGO [None]
